FAERS Safety Report 5825453-3 (Version None)
Quarter: 2008Q3

REPORT INFORMATION
  Report Type: 
  Country: None (occurrence: None)
  Receive Date: 20080729
  Receipt Date: 20071127
  Transmission Date: 20090109
  Serious: No
  Sender: FDA-Public Use
  Company Number: US-BAYER-200713205BCC

PATIENT
  Age: 78 Year
  Sex: Female
  Weight: 64 kg

DRUGS (8)
  1. ALEVE (CAPLET) [Suspect]
     Indication: PAIN IN EXTREMITY
     Dosage: TOTAL DAILY DOSE: 440 MG  UNIT DOSE: 220 MG
     Route: 048
     Dates: start: 20071005
  2. EVISTA [Concomitant]
  3. LISINOPRIL [Concomitant]
  4. HYDROCHLOROTHIAZIDE [Concomitant]
  5. ENABLEX [Concomitant]
  6. LUMIGAN [Concomitant]
  7. AZOPT [Concomitant]
  8. HYDROCONE [Concomitant]
     Dates: start: 20071001

REACTIONS (2)
  - CHEST DISCOMFORT [None]
  - CONSTIPATION [None]
